FAERS Safety Report 9332704 (Version 2)
Quarter: 2013Q2

REPORT INFORMATION
  Report Type: Report from Study
  Country: TH (occurrence: TH)
  Receive Date: 20130606
  Receipt Date: 20130624
  Transmission Date: 20140414
  Serious: Yes (Death, Other)
  Sender: FDA-Public Use
  Company Number: PHHY2013TH057227

PATIENT
  Age: 74 Year
  Sex: Male
  Weight: 60 kg

DRUGS (2)
  1. GLIVEC [Suspect]
     Indication: CHRONIC MYELOID LEUKAEMIA
     Dosage: 400 MG, UNK
     Dates: start: 20101011
  2. LAMIVUDINE [Concomitant]
     Indication: HEPATIC CIRRHOSIS
     Dosage: 150 MG, DAILY
     Route: 048
     Dates: start: 20130110

REACTIONS (4)
  - Hepatocellular carcinoma [Fatal]
  - Second primary malignancy [Fatal]
  - Hepatic cirrhosis [Unknown]
  - Hepatitis B [Unknown]
